FAERS Safety Report 21299131 (Version 1)
Quarter: 2022Q3

REPORT INFORMATION
  Report Type: Spontaneous
  Country: CA (occurrence: CA)
  Receive Date: 20220906
  Receipt Date: 20220906
  Transmission Date: 20221027
  Serious: Yes (Life-Threatening, Hospitalization, Other)
  Sender: FDA-Public Use
  Company Number: CA-PFIZER INC-202201124945

PATIENT
  Age: 27 Year
  Sex: Female
  Weight: 106 kg

DRUGS (6)
  1. HEPARIN SODIUM [Suspect]
     Active Substance: HEPARIN SODIUM
     Indication: Pulmonary embolism
     Dosage: 25000 UNITS, 1 EVERY 8 HOURS
     Route: 042
  2. HEPARIN SODIUM [Suspect]
     Active Substance: HEPARIN SODIUM
     Indication: Haemodynamic instability
  3. ALTEPLASE [Suspect]
     Active Substance: ALTEPLASE
     Indication: Pulmonary embolism
     Dosage: 100 MG, ONCE
     Route: 042
  4. ALTEPLASE [Suspect]
     Active Substance: ALTEPLASE
     Indication: Haemodynamic instability
  5. CLONIDINE [Concomitant]
     Active Substance: CLONIDINE
  6. VITAMIN D3 [Concomitant]
     Active Substance: CHOLECALCIFEROL

REACTIONS (1)
  - Haematoma [Recovered/Resolved]
